FAERS Safety Report 8269426-2 (Version None)
Quarter: 2012Q2

REPORT INFORMATION
  Report Type: 
  Country: None (occurrence: None)
  Receive Date: 20120409
  Receipt Date: 20120301
  Transmission Date: 20120825
  Serious: No
  Sender: FDA-Public Use
  Company Number: US-ASTRAZENECA-2012SE14373

PATIENT
  Sex: Female

DRUGS (1)
  1. BRILINTA [Suspect]
     Route: 048

REACTIONS (1)
  - RASH [None]
